FAERS Safety Report 8468810-1 (Version None)
Quarter: 2012Q2

REPORT INFORMATION
  Report Type: 
  Country: None (occurrence: None)
  Receive Date: 20120619
  Receipt Date: 20120604
  Transmission Date: 20120825
  Serious: Yes (Other)
  Sender: FDA-Public Use
  Company Number: JPI-P-021875

PATIENT
  Age: 73 Year
  Sex: Female
  Weight: 69.4003 kg

DRUGS (3)
  1. XYREM [Suspect]
     Indication: NARCOLEPSY
     Dosage: SEE IMAGE
     Route: 048
     Dates: start: 20120301, end: 20120101
  2. XYREM [Suspect]
     Indication: NARCOLEPSY
     Dosage: SEE IMAGE
     Route: 048
     Dates: start: 20120405, end: 20120603
  3. XYREM [Suspect]
     Indication: NARCOLEPSY
     Dosage: SEE IMAGE
     Route: 048
     Dates: start: 20120604

REACTIONS (9)
  - SOMNOLENCE [None]
  - NAUSEA [None]
  - VOMITING [None]
  - DRUG DOSE OMISSION [None]
  - ERUCTATION [None]
  - WRIST FRACTURE [None]
  - DIZZINESS [None]
  - RETCHING [None]
  - CHEST DISCOMFORT [None]
